FAERS Safety Report 24844135 (Version 2)
Quarter: 2025Q2

REPORT INFORMATION
  Report Type: Spontaneous
  Country: US (occurrence: US)
  Receive Date: 20250115
  Receipt Date: 20250613
  Transmission Date: 20250716
  Serious: No
  Sender: SANOFI AVENTIS
  Company Number: US-SA-2025SA012527

PATIENT
  Age: 16 Year
  Sex: Female
  Weight: 54.55 kg

DRUGS (2)
  1. CERDELGA [Suspect]
     Active Substance: ELIGLUSTAT
     Indication: Gaucher^s disease
     Dosage: 84 MG, BID
     Route: 048
     Dates: start: 202211
  2. CERDELGA [Suspect]
     Active Substance: ELIGLUSTAT
     Dosage: 0.5 DF, BID
     Route: 048

REACTIONS (2)
  - Weight increased [Unknown]
  - Product prescribing issue [Unknown]

NARRATIVE: CASE EVENT DATE: 20240918
